FAERS Safety Report 6009918-X (Version None)
Quarter: 2008Q4

REPORT INFORMATION
  Report Type: 
  Country: None (occurrence: None)
  Receive Date: 20081217
  Receipt Date: 20081217
  Transmission Date: 20090506
  Serious: Yes (Other)
  Sender: FDA-Public Use
  Company Number: None

PATIENT
  Sex: Female
  Weight: 113.3993 kg

DRUGS (2)
  1. NASONEX [Suspect]
     Indication: MULTIPLE ALLERGIES
     Dosage: (ON BOTTLE) 120 SPRAYS (2 SPRAYS) -} ONCE 1 DAILY NOV 2008, AND OTHER MONTHS ON AND OFF IN 2008
     Dates: start: 20080101
  2. NASONEX [Suspect]
     Indication: MULTIPLE ALLERGIES
     Dosage: (ON BOTTLE) 120 SPRAYS (2 SPRAYS) -} ONCE 1 DAILY NOV 2008, AND OTHER MONTHS ON AND OFF IN 2008
     Dates: start: 20081101

REACTIONS (1)
  - SINUS DISORDER [None]
